FAERS Safety Report 19074821 (Version 1)
Quarter: 2021Q1

REPORT INFORMATION
  Report Type: Spontaneous
  Country: US (occurrence: US)
  Receive Date: 20210330
  Receipt Date: 20210330
  Transmission Date: 20210420
  Serious: No
  Sender: FDA-Public Use
  Company Number: US-BAUSCH-BL-2021-007007

PATIENT
  Sex: Female

DRUGS (2)
  1. VASOTEC [Suspect]
     Active Substance: ENALAPRIL MALEATE
     Indication: BLOOD PRESSURE ABNORMAL
     Route: 065
  2. VASOTEC [Suspect]
     Active Substance: ENALAPRIL MALEATE
     Dosage: TWO 5 MG
     Route: 065
     Dates: start: 2021

REACTIONS (1)
  - Drug ineffective [Unknown]
